FAERS Safety Report 18948828 (Version 1)
Quarter: 2021Q1

REPORT INFORMATION
  Report Type: Report from Study
  Country: CA (occurrence: CA)
  Receive Date: 20210227
  Receipt Date: 20210227
  Transmission Date: 20210420
  Serious: Yes (Other)
  Sender: FDA-Public Use
  Company Number: CA-JNJFOC-20191241521

PATIENT
  Age: 46 Year
  Sex: Female

DRUGS (1)
  1. REMICADE [Suspect]
     Active Substance: INFLIXIMAB
     Indication: CROHN^S DISEASE
     Route: 042

REACTIONS (4)
  - Scar [Recovered/Resolved]
  - Ligament sprain [Unknown]
  - Staphylococcal skin infection [Not Recovered/Not Resolved]
  - Headache [Unknown]
